FAERS Safety Report 21155083 (Version 1)
Quarter: 2022Q3

REPORT INFORMATION
  Report Type: Spontaneous
  Country: LT (occurrence: LT)
  Receive Date: 20220801
  Receipt Date: 20220801
  Transmission Date: 20221027
  Serious: Yes (Life-Threatening, Hospitalization)
  Sender: FDA-Public Use
  Company Number: None

PATIENT
  Age: 22 Year
  Sex: Female

DRUGS (10)
  1. QUETIAPINE FUMARATE [Interacting]
     Active Substance: QUETIAPINE FUMARATE
     Indication: Mental disorder
     Dates: start: 20220610, end: 20220614
  2. ARIPIPRAZOLE [Interacting]
     Active Substance: ARIPIPRAZOLE
     Indication: Mental disorder
     Dates: start: 20220610, end: 20220614
  3. ESCITALOPRAM [Interacting]
     Active Substance: ESCITALOPRAM OXALATE
     Indication: Mental disorder
     Dates: start: 20220610, end: 20220614
  4. DIAZEPAM [Interacting]
     Active Substance: DIAZEPAM
     Indication: Mental disorder
     Dates: start: 20220614, end: 20220614
  5. TRAZODONE HYDROCHLORIDE [Interacting]
     Active Substance: TRAZODONE HYDROCHLORIDE
     Indication: Mental disorder
     Dates: start: 20220614, end: 20220614
  6. DIAZEPAM [Interacting]
     Active Substance: DIAZEPAM
     Indication: Mental disorder
     Dates: start: 20220610, end: 20220614
  7. QUETIAPINE FUMARATE [Interacting]
     Active Substance: QUETIAPINE FUMARATE
     Indication: Mental disorder
     Dates: start: 20220614, end: 20220614
  8. TRAZODONE HYDROCHLORIDE [Interacting]
     Active Substance: TRAZODONE HYDROCHLORIDE
     Indication: Mental disorder
     Dates: start: 20220610, end: 20220614
  9. ARIPIPRAZOLE [Interacting]
     Active Substance: ARIPIPRAZOLE
     Indication: Mental disorder
     Dates: start: 20220614, end: 20220614
  10. ESCITALOPRAM [Interacting]
     Active Substance: ESCITALOPRAM OXALATE
     Indication: Mental disorder
     Dates: start: 20220614, end: 20220614

REACTIONS (8)
  - Somnolence [Recovering/Resolving]
  - Abnormal behaviour [Recovering/Resolving]
  - Intentional overdose [Unknown]
  - Disorientation [Recovering/Resolving]
  - Accidental overdose [Unknown]
  - Mental disorder [Recovering/Resolving]
  - Suicide attempt [Unknown]
  - Drug interaction [Unknown]

NARRATIVE: CASE EVENT DATE: 20220614
